FAERS Safety Report 4343786-7 (Version None)
Quarter: 2004Q2

REPORT INFORMATION
  Report Type: 
  Country: None (occurrence: None)
  Receive Date: 20040419
  Receipt Date: 20040412
  Transmission Date: 20050107
  Serious: Yes (Other)
  Sender: FDA-Public Use
  Company Number: 040015

PATIENT
  Age: 81 Year
  Sex: Female
  Weight: 68.0396 kg

DRUGS (9)
  1. MIRALAX [Suspect]
     Indication: CONSTIPATION
     Dosage: 17 GRAMS  1X DAY PO
     Route: 048
  2. BETAXOLOL [Concomitant]
  3. ZANTAC [Concomitant]
  4. EVISTA [Concomitant]
  5. LIPITOR [Concomitant]
  6. ADULT ASPIRIN [Concomitant]
  7. MECLIZINE [Concomitant]
  8. LEVOTHYROXINE [Concomitant]
  9. AMBIEN [Concomitant]

REACTIONS (5)
  - EYE SWELLING [None]
  - FLANK PAIN [None]
  - MYALGIA [None]
  - OEDEMA PERIPHERAL [None]
  - PAIN IN EXTREMITY [None]
